FAERS Safety Report 6243695-2 (Version None)
Quarter: 2009Q2

REPORT INFORMATION
  Report Type: 
  Country: None (occurrence: None)
  Receive Date: 20090624
  Receipt Date: 20090617
  Transmission Date: 20091009
  Serious: Yes (Other)
  Sender: FDA-Public Use
  Company Number: BR-PFIZER INC-2009202150

PATIENT
  Age: 27 Year

DRUGS (2)
  1. CELEBRA [Suspect]
     Indication: TENDONITIS
     Dosage: UNK
     Dates: start: 20090101, end: 20090101
  2. DORFLEX [Concomitant]
     Indication: TENDONITIS
     Dosage: UNK
     Dates: start: 20090101

REACTIONS (14)
  - ABDOMINAL PAIN [None]
  - ANOREXIA [None]
  - CHEST PAIN [None]
  - CHILLS [None]
  - DIARRHOEA [None]
  - DRUG INEFFECTIVE [None]
  - FEELING HOT [None]
  - HYPERHIDROSIS [None]
  - INSOMNIA [None]
  - MENSTRUATION IRREGULAR [None]
  - NAUSEA [None]
  - NEGATIVE THOUGHTS [None]
  - TACHYCARDIA [None]
  - TREMOR [None]
